FAERS Safety Report 18984893 (Version 1)
Quarter: 2021Q1

REPORT INFORMATION
  Report Type: Spontaneous
  Country: SG (occurrence: SG)
  Receive Date: 20210309
  Receipt Date: 20210309
  Transmission Date: 20210420
  Serious: Yes (Hospitalization, Other)
  Sender: FDA-Public Use
  Company Number: SG-ALVOGEN-2021-ALVOGEN-116706

PATIENT
  Age: 82 Year
  Sex: Female

DRUGS (1)
  1. DAPSONE. [Suspect]
     Active Substance: DAPSONE
     Indication: PEMPHIGUS

REACTIONS (3)
  - Haemolysis [Recovering/Resolving]
  - Erythropoiesis abnormal [Recovering/Resolving]
  - Methaemoglobinaemia [Recovering/Resolving]
